FAERS Safety Report 7742771-2 (Version None)
Quarter: 2011Q3

REPORT INFORMATION
  Report Type: 
  Country: None (occurrence: None)
  Receive Date: 20110912
  Receipt Date: 20110906
  Transmission Date: 20111222
  Serious: Yes (Hospitalization)
  Sender: FDA-Public Use
  Company Number: US-JNJFOC-20110902986

PATIENT
  Sex: Male

DRUGS (2)
  1. TYLENOL-500 [Suspect]
     Indication: PYREXIA
     Dosage: 3 TIMES PER DAY FOR 2 DAYS IN A ROW
     Dates: start: 20090801
  2. TYLENOL-500 [Suspect]
     Indication: ANALGESIC THERAPY
     Dosage: 3 TIMES PER DAY FOR 2 DAYS IN A ROW
     Dates: start: 20090801

REACTIONS (1)
  - ACUTE HEPATIC FAILURE [None]
